FAERS Safety Report 14096568 (Version 1)
Quarter: 2017Q4

REPORT INFORMATION
  Report Type: Report from Study
  Country: IT (occurrence: IT)
  Receive Date: 20171017
  Receipt Date: 20171017
  Transmission Date: 20180321
  Serious: Yes (Other)
  Sender: FDA-Public Use
  Company Number: IT-ACCORD-059936

PATIENT
  Sex: Male
  Weight: 70 kg

DRUGS (1)
  1. MYCOPHENOLATE ACCORD [Suspect]
     Active Substance: MYCOPHENOLIC ACID
     Indication: LIVER TRANSPLANT
     Route: 048

REACTIONS (2)
  - Confusional state [Recovered/Resolved with Sequelae]
  - Epilepsy [Recovered/Resolved with Sequelae]
